FAERS Safety Report 9156586 (Version 1)
Quarter: 2013Q1

REPORT INFORMATION
  Report Type: Spontaneous
  Country: US (occurrence: None)
  Receive Date: 20130308
  Receipt Date: 20130308
  Transmission Date: 20140127
  Serious: Yes (Hospitalization)
  Sender: FDA-Public Use
  Company Number: None

PATIENT
  Age: 5 Year
  Sex: Male
  Weight: 14.1 kg

DRUGS (14)
  1. ZOLEDRONIC ACID (ZOMETA) [Suspect]
     Indication: NEUROBLASTOMA
     Dosage: ON DAY 1
     Route: 042
     Dates: start: 20130220
  2. ACETAMINOPHEN [Concomitant]
  3. LORTAB [Concomitant]
  4. CALCIUM CARBONATE [Concomitant]
  5. ENALAPRIL [Concomitant]
  6. DIPHENHYDRAMINE [Concomitant]
  7. DRISTOL [Concomitant]
  8. MEGACE [Concomitant]
  9. NEUTRAPHOA [Concomitant]
  10. BACTRIM [Concomitant]
  11. LIDOCAINE [Concomitant]
  12. MORPHINE [Concomitant]
  13. ONDANSETRON [Concomitant]
  14. MIRALAX [Concomitant]

REACTIONS (1)
  - Hypocalcaemia [None]
